FAERS Safety Report 10038348 (Version 1)
Quarter: 2014Q1

REPORT INFORMATION
  Report Type: Spontaneous
  Country: US (occurrence: US)
  Receive Date: 20140326
  Receipt Date: 20140326
  Transmission Date: 20141002
  Serious: No
  Sender: FDA-Public Use
  Company Number: US-PFIZER INC-2014084990

PATIENT
  Sex: 0

DRUGS (2)
  1. DAYPRO [Suspect]
     Indication: PAIN
     Dosage: UNK
  2. MOBIC [Suspect]
     Indication: PAIN
     Dosage: UNK

REACTIONS (1)
  - Drug ineffective [Unknown]
